FAERS Safety Report 23084356 (Version 1)
Quarter: 2023Q4

REPORT INFORMATION
  Report Type: Other
  Country: None (occurrence: BR)
  Receive Date: 20231019
  Receipt Date: 20231019
  Transmission Date: 20240110
  Serious: Yes (Death, Hospitalization, Other)
  Sender: FDA-Public Use
  Company Number: BR-SIGA Technologies, Inc.-2147249

PATIENT
  Age: 20 Year
  Sex: Male

DRUGS (5)
  1. TPOXX [Suspect]
     Active Substance: TECOVIRIMAT
     Indication: Monkeypox
  2. BENZODIAZEPINE [Concomitant]
     Active Substance: BENZODIAZEPINE
  3. UNSPECIFIED INGREDIENT [Concomitant]
     Active Substance: UNSPECIFIED INGREDIENT
  4. UNSPECIFIED INGREDIENT [Concomitant]
     Active Substance: UNSPECIFIED INGREDIENT
  5. Broad-spectrum antibiotics [Concomitant]

REACTIONS (4)
  - Generalised tonic-clonic seizure [Unknown]
  - Hypoxia [Not Recovered/Not Resolved]
  - Cardio-respiratory arrest [Not Recovered/Not Resolved]
  - Drug ineffective [Not Recovered/Not Resolved]
